FAERS Safety Report 11492173 (Version 2)
Quarter: 2015Q3

REPORT INFORMATION
  Report Type: Report from Study
  Country: DE (occurrence: DE)
  Receive Date: 20150910
  Receipt Date: 20150917
  Transmission Date: 20151125
  Serious: Yes (Hospitalization)
  Sender: FDA-Public Use
  Company Number: DE-ABBVIE-14P-062-1307703-00

PATIENT
  Age: 48 Year
  Sex: Female

DRUGS (3)
  1. DUODOPA [Suspect]
     Active Substance: CARBIDOPA\LEVODOPA
     Dosage: MD 3.0ML; CRD 4.0ML/H; CRN 3.5 ML/H; ED 1ML
     Route: 050
     Dates: end: 20141219
  2. DUODOPA [Suspect]
     Active Substance: CARBIDOPA\LEVODOPA
     Indication: PARKINSON^S DISEASE
     Dosage: MD 3.0ML; CRD 4.0ML/H; CRN 3.5 ML/H; ED 3.5ML
     Route: 050
     Dates: start: 201201, end: 201410
  3. DUODOPA [Suspect]
     Active Substance: CARBIDOPA\LEVODOPA
     Dosage: DUODOPA WAS INCREASED
     Route: 050
     Dates: end: 20141207

REACTIONS (11)
  - Parkinsonian crisis [Unknown]
  - On and off phenomenon [Recovered/Resolved]
  - Pain [Unknown]
  - Dystonia [Unknown]
  - Vitamin B6 abnormal [Unknown]
  - Vitamin B12 abnormal [Unknown]
  - Polyneuropathy [Unknown]
  - Akinesia [Unknown]
  - Drug level fluctuating [Unknown]
  - Condition aggravated [Unknown]
  - Psychotic disorder [Recovered/Resolved]

NARRATIVE: CASE EVENT DATE: 201212
